FAERS Safety Report 6557592-6 (Version None)
Quarter: 2010Q1

REPORT INFORMATION
  Report Type: 
  Country: None (occurrence: None)
  Receive Date: 20100129
  Receipt Date: 20100107
  Transmission Date: 20100710
  Serious: Yes (Death, Other)
  Sender: FDA-Public Use
  Company Number: PHHY2010JP01277

PATIENT
  Sex: Male

DRUGS (10)
  1. DIOVAN [Suspect]
     Indication: HYPERTENSION
     Dosage: 80 MG, TWICE DAILY
     Route: 048
     Dates: start: 20080117, end: 20081227
  2. AMARYL [Concomitant]
     Dosage: 1 MG
     Route: 048
     Dates: start: 20080117, end: 20081021
  3. TAKEPRON [Concomitant]
     Dosage: 15 MG
     Route: 048
     Dates: start: 20080117, end: 20080918
  4. PURSENNID [Concomitant]
     Dosage: 12 MG
     Route: 048
     Dates: start: 20080117
  5. MAGLAX [Concomitant]
     Dosage: 660 MG
     Route: 048
     Dates: start: 20080117
  6. NEUROTROPIN [Concomitant]
     Dosage: 12 IU, UNK
     Route: 048
     Dates: start: 20080117
  7. BIO THREE [Concomitant]
     Dosage: 3 G
     Dates: start: 20080117
  8. PHENOBARBITAL TAB [Concomitant]
     Dosage: 0.9 G
     Route: 048
     Dates: start: 20080117
  9. OMEPRAL [Concomitant]
     Dosage: 200 MG
     Route: 048
     Dates: start: 20080919
  10. LEVEMIR [Concomitant]
     Dosage: 4 IU
     Route: 058
     Dates: start: 20081022

REACTIONS (7)
  - ACUTE MYOCARDIAL INFARCTION [None]
  - BLOOD CHOLESTEROL INCREASED [None]
  - BLOOD CREATININE INCREASED [None]
  - BLOOD PRESSURE SYSTOLIC INCREASED [None]
  - BLOOD UREA INCREASED [None]
  - DECREASED APPETITE [None]
  - PROTEIN URINE [None]
